APPROVED DRUG PRODUCT: CERUMENEX
Active Ingredient: TROLAMINE POLYPEPTIDE OLEATE CONDENSATE
Strength: 10%
Dosage Form/Route: SOLUTION/DROPS;OTIC
Application: N011340 | Product #002
Applicant: PHARMACEUTICAL RESEARCH ASSOC INC
Approved: Approved Prior to Jan 1, 1982 | RLD: No | RS: No | Type: DISCN